FAERS Safety Report 6820259-0 (Version None)
Quarter: 2010Q3

REPORT INFORMATION
  Report Type: 
  Country: None (occurrence: None)
  Receive Date: 20100707
  Receipt Date: 20100705
  Transmission Date: 20110219
  Serious: Yes (Death)
  Sender: FDA-Public Use
  Company Number: GXKR2010DE07354

PATIENT
  Age: 58 Year
  Sex: Male

DRUGS (1)
  1. TRIAMHEXAL (NGX) [Suspect]
     Dosage: 40 MG, CA EVERY 10TH DAY
     Route: 019
     Dates: start: 20090401

REACTIONS (9)
  - HYPERHIDROSIS [None]
  - HYPERPHAGIA [None]
  - IRRITABILITY [None]
  - LEUKOPENIA [None]
  - PAIN IN EXTREMITY [None]
  - RASH [None]
  - SLEEP DISORDER [None]
  - THROMBOCYTOPENIA [None]
  - WEIGHT DECREASED [None]
